FAERS Safety Report 11797970 (Version 1)
Quarter: 2015Q4

REPORT INFORMATION
  Report Type: Spontaneous
  Country: CA (occurrence: CA)
  Receive Date: 20151203
  Receipt Date: 20151203
  Transmission Date: 20160305
  Serious: Yes (Death, Life-Threatening, Other)
  Sender: FDA-Public Use
  Company Number: CA-JNJFOC-20151200761

PATIENT

DRUGS (1)
  1. IMBRUVICA [Suspect]
     Active Substance: IBRUTINIB
     Indication: CHRONIC LYMPHOCYTIC LEUKAEMIA
     Route: 048

REACTIONS (7)
  - Gastrointestinal haemorrhage [Unknown]
  - Haemorrhage [Fatal]
  - Haematuria [Unknown]
  - Post procedural haemorrhage [Unknown]
  - Contusion [Unknown]
  - Subdural haematoma [Unknown]
  - Petechiae [Unknown]
